FAERS Safety Report 7575210-5 (Version None)
Quarter: 2011Q2

REPORT INFORMATION
  Report Type: 
  Country: None (occurrence: None)
  Receive Date: 20110627
  Receipt Date: 20110607
  Transmission Date: 20111010
  Serious: Yes (Hospitalization)
  Sender: FDA-Public Use
  Company Number: US-BAYER-201025795NA

PATIENT
  Age: 52 Year
  Sex: Female
  Weight: 101.3 kg

DRUGS (48)
  1. INSULIN [Concomitant]
     Indication: DIABETES MELLITUS
     Route: 058
     Dates: start: 19950801
  2. FISH OIL [Concomitant]
     Indication: HYPERTRIGLYCERIDAEMIA
     Route: 048
     Dates: start: 20061001
  3. LEXAPRO [Concomitant]
     Indication: DEPRESSION
     Route: 048
     Dates: start: 20080301
  4. PROCHLORPERAZINE MALEATE [Concomitant]
     Indication: PROPHYLAXIS
     Route: 048
     Dates: start: 20100101
  5. SPIRONOLACTONE [Concomitant]
     Indication: CARDIOVASCULAR DISORDER
     Route: 048
     Dates: start: 20060601
  6. ZOFRAN [Concomitant]
     Indication: PROPHYLAXIS
     Route: 048
     Dates: start: 20100101
  7. LEVAQUIN [Concomitant]
     Indication: UPPER RESPIRATORY TRACT INFECTION
     Route: 048
     Dates: start: 20100215, end: 20100222
  8. DOXYCYCLINE [Concomitant]
     Dosage: UNK
     Dates: start: 20110326, end: 20110404
  9. SORAFENIB (RAF KINASE INHIBITOR) [Suspect]
     Route: 048
     Dates: start: 20100322, end: 20100404
  10. ALPRAZOLAM [Concomitant]
     Indication: ANXIETY
     Dosage: 1.5 MG (DAILY DOSE), , ORAL
     Route: 048
     Dates: start: 20011001
  11. IMDUR [Concomitant]
     Indication: HYPERTENSION
     Route: 048
     Dates: start: 20061201
  12. LEVOTHYROXINE SODIUM [Concomitant]
     Indication: HYPOTHYROIDISM
     Route: 048
     Dates: start: 20020101
  13. MORPHINE SULFATE [Concomitant]
     Indication: PAIN
     Route: 048
     Dates: start: 20021001
  14. POTASSIUM CHLORIDE [Concomitant]
     Indication: MINERAL SUPPLEMENTATION
     Route: 048
     Dates: start: 20091201
  15. SORAFENIB (RAF KINASE INHIBITOR) [Suspect]
     Indication: HEPATIC NEOPLASM MALIGNANT
     Route: 048
     Dates: start: 20100301, end: 20100317
  16. ASPIRIN [Concomitant]
     Indication: PAIN
     Route: 048
     Dates: start: 20020301
  17. FENTANYL [Concomitant]
     Indication: PAIN
     Dosage: X72 HOURS
     Route: 062
     Dates: start: 20021001
  18. PATANOL [Concomitant]
     Indication: SEASONAL ALLERGY
     Dosage: 2 DROPS
     Route: 031
     Dates: start: 20080901
  19. TEMAZEPAM [Concomitant]
     Indication: SLEEP DISORDER THERAPY
     Route: 048
     Dates: start: 20080301
  20. VITAMIN B-12 [Concomitant]
     Indication: VITAMIN SUPPLEMENTATION
     Dosage: 100 MCG/ML
     Route: 048
     Dates: start: 20071201
  21. LIDEX [Concomitant]
     Indication: RASH
     Route: 061
     Dates: start: 20070501
  22. SORAFENIB (RAF KINASE INHIBITOR) [Suspect]
     Dosage: 400 MG, BID
     Route: 048
     Dates: start: 20100504
  23. SORAFENIB (RAF KINASE INHIBITOR) [Suspect]
     Dosage: 400 MG, QD
     Route: 048
     Dates: start: 20101209, end: 20110524
  24. ALBUTEROL SULFATE AUTOHALER [Concomitant]
     Indication: ASTHMA
     Route: 055
     Dates: start: 19980801
  25. FLUTICASONE PROPIONATE [Concomitant]
     Indication: ASTHMA
     Route: 048
     Dates: start: 20090501
  26. CIPROFLOXACIN [Concomitant]
     Indication: CELLULITIS
     Dosage: UNK
     Dates: start: 20100407, end: 20100415
  27. ATENOLOL [Concomitant]
     Indication: CARDIOVASCULAR DISORDER
     Route: 048
     Dates: start: 19980601
  28. FLONASE [Concomitant]
     Indication: ASTHMA
     Route: 045
     Dates: start: 20080501
  29. MULTI-VITAMIN [Concomitant]
     Indication: VITAMIN SUPPLEMENTATION
     Dosage: 1 TABLET
     Route: 048
     Dates: start: 19890601
  30. LEVAQUIN [Concomitant]
     Indication: INFECTION PROPHYLAXIS
     Dosage: 500 MG TOTAL DAILY DOSE
     Dates: start: 20110225, end: 20110303
  31. SORAFENIB (RAF KINASE INHIBITOR) [Suspect]
     Route: 048
     Dates: start: 20100422, end: 20100504
  32. CYCLOBENZAPRINE HYDROCHLORIDE [Concomitant]
     Indication: FIBROMYALGIA
     Route: 048
     Dates: start: 20011001
  33. LANTUS [Concomitant]
     Indication: DIABETES MELLITUS
     Dosage: UNK
     Route: 058
     Dates: start: 20011001, end: 20110314
  34. METAMUCIL-2 [Concomitant]
     Indication: CONSTIPATION PROPHYLAXIS
     Route: 048
     Dates: start: 19950101
  35. NITROGLYCERIN [Concomitant]
     Indication: CARDIOVASCULAR DISORDER
     Route: 048
     Dates: start: 20060201
  36. NOVOLOG [Concomitant]
     Indication: DIABETES MELLITUS
     Route: 058
     Dates: start: 19950801
  37. PROTONIX [Concomitant]
     Indication: GASTROOESOPHAGEAL REFLUX DISEASE
     Route: 048
     Dates: start: 20051201
  38. BUMETANIDE [Concomitant]
     Indication: RENAL FAILURE
     Route: 048
     Dates: start: 20060601
  39. BUPROPION HYDROCHLORIDE [Concomitant]
     Indication: DEPRESSION
     Route: 048
     Dates: start: 20090101
  40. METHYLPREDNISOLONE [Concomitant]
     Indication: PAIN PROPHYLAXIS
     Route: 048
     Dates: start: 20091215
  41. METOCLOPRAMIDE [Concomitant]
     Indication: IMPAIRED GASTRIC EMPTYING
     Dosage: 30 MG, PRN
     Route: 048
     Dates: start: 20060601, end: 20110208
  42. ZYRTEC [Concomitant]
     Indication: ANTIALLERGIC THERAPY
     Route: 048
     Dates: start: 20090501
  43. DOXYCYCLINE [Concomitant]
     Indication: CELLULITIS
     Dosage: UNK
     Dates: start: 20100407, end: 20100415
  44. LEVEMIR [Concomitant]
     Indication: DIABETES MELLITUS
     Dosage: UNK
     Dates: start: 20110314
  45. DOCUSATE SODIUM [Concomitant]
     Indication: CONSTIPATION PROPHYLAXIS
     Route: 048
     Dates: start: 20011001
  46. DRISDOL [Concomitant]
     Indication: OSTEOARTHRITIS
     Dates: start: 20080601
  47. MICONAZOLE NITRATE [Concomitant]
     Indication: RASH
     Route: 061
     Dates: start: 20070501
  48. ZITHROMAX [Concomitant]
     Indication: ANTIBIOTIC PROPHYLAXIS
     Route: 048
     Dates: start: 20071001

REACTIONS (4)
  - CHEST PAIN [None]
  - DEEP VEIN THROMBOSIS [None]
  - HYPERTENSION [None]
  - IMPAIRED GASTRIC EMPTYING [None]
